FAERS Safety Report 9251773 (Version 1)
Quarter: 2013Q2

REPORT INFORMATION
  Report Type: Spontaneous
  Country: IT (occurrence: IT)
  Receive Date: 20130424
  Receipt Date: 20130424
  Transmission Date: 20140414
  Serious: Yes (Other)
  Sender: FDA-Public Use
  Company Number: IT-PFIZER INC-2013074686

PATIENT
  Age: 68 Year
  Sex: Male

DRUGS (4)
  1. RAMIPRIL-ZENTIVA [Suspect]
     Indication: HYPERTENSION
     Dosage: 5 MG, 1X/DAY
     Route: 048
     Dates: start: 20130115, end: 20130215
  2. PANTOPRAZOLE SODIUM [Concomitant]
     Dosage: UNK
  3. TAMSULOSINA HYDROCHLORIDE [Concomitant]
     Dosage: UNK
  4. AVODART [Concomitant]
     Dosage: UNK

REACTIONS (2)
  - Tachycardia [Recovered/Resolved]
  - Extrasystoles [Unknown]
